FAERS Safety Report 6201235-8 (Version None)
Quarter: 2009Q2

REPORT INFORMATION
  Report Type: 
  Country: None (occurrence: None)
  Receive Date: 20090520
  Receipt Date: 20090421
  Transmission Date: 20091009
  Serious: Yes (Other)
  Sender: FDA-Public Use
  Company Number: KV200801333

PATIENT
  Sex: Female

DRUGS (1)
  1. MORPHINE SULFATE [Suspect]
     Indication: DRUG USE FOR UNKNOWN INDICATION
     Dosage: ORAL
     Route: 048

REACTIONS (7)
  - BALANCE DISORDER [None]
  - FALL [None]
  - INJURY [None]
  - LOSS OF CONSCIOUSNESS [None]
  - PRODUCT QUALITY ISSUE [None]
  - UPPER LIMB FRACTURE [None]
  - WRIST FRACTURE [None]
